FAERS Safety Report 5140031-X (Version None)
Quarter: 2006Q4

REPORT INFORMATION
  Report Type: 
  Country: None (occurrence: None)
  Receive Date: 20061025
  Receipt Date: 20061025
  Transmission Date: 20070319
  Serious: Yes (Hospitalization)
  Sender: FDA-Public Use
  Company Number: None

PATIENT
  Age: 72 Year
  Sex: Female

DRUGS (2)
  1. RITUXIMAB [Suspect]
     Indication: NEUROPATHY
     Dosage: 604MG WEEKLY X'3 IV
     Route: 042
  2. RITUXIMAB [Suspect]
     Indication: SJOGREN'S SYNDROME
     Dosage: 604MG WEEKLY X'3 IV
     Route: 042

REACTIONS (7)
  - OEDEMA PERIPHERAL [None]
  - PAIN IN EXTREMITY [None]
  - PETECHIAE [None]
  - PURPURA [None]
  - RASH GENERALISED [None]
  - SYNCOPE [None]
  - VASCULITIS [None]
